FAERS Safety Report 18162645 (Version 4)
Quarter: 2021Q3

REPORT INFORMATION
  Report Type: Spontaneous
  Country: US (occurrence: US)
  Receive Date: 20200818
  Receipt Date: 20210910
  Transmission Date: 20211014
  Serious: Yes (Other)
  Sender: FDA-Public Use
  Company Number: US-PFIZER INC-2020317371

PATIENT
  Age: 74 Year
  Sex: Male
  Weight: 68.04 kg

DRUGS (1)
  1. BOSULIF [Suspect]
     Active Substance: BOSUTINIB MONOHYDRATE
     Indication: CHRONIC MYELOID LEUKAEMIA
     Dosage: 400 MG, 1X/DAY BEFORE BED
     Route: 048
     Dates: start: 202006

REACTIONS (5)
  - Diarrhoea [Recovering/Resolving]
  - Gastric infection [Recovered/Resolved]
  - Chronic gastritis [Unknown]
  - Bowel movement irregularity [Not Recovered/Not Resolved]
  - Muscle spasms [Unknown]

NARRATIVE: CASE EVENT DATE: 202006
